FAERS Safety Report 12736751 (Version 1)
Quarter: 2016Q3

REPORT INFORMATION
  Report Type: Spontaneous
  Country: US (occurrence: US)
  Receive Date: 20160913
  Receipt Date: 20160913
  Transmission Date: 20161109
  Serious: No
  Sender: FDA-Public Use
  Company Number: US-ASTRAZENECA-2016SE81209

PATIENT
  Age: 82 Year
  Sex: Female
  Weight: 73.5 kg

DRUGS (5)
  1. NUPLAZID [Concomitant]
     Active Substance: PIMAVANSERIN TARTRATE
     Indication: PARKINSON^S DISEASE
     Route: 048
     Dates: start: 20160607, end: 20160721
  2. AMANTADINE [Concomitant]
     Active Substance: AMANTADINE
  3. RISPERDAL [Concomitant]
     Active Substance: RISPERIDONE
  4. EFFEXOR [Concomitant]
     Active Substance: VENLAFAXINE HYDROCHLORIDE
  5. SEROQUEL [Suspect]
     Active Substance: QUETIAPINE FUMARATE
     Indication: DELUSIONAL PERCEPTION
     Route: 048

REACTIONS (6)
  - Product use issue [Unknown]
  - Drug ineffective [Unknown]
  - Off label use [Unknown]
  - Asthenia [Unknown]
  - Dizziness [Unknown]
  - Condition aggravated [Unknown]
